FAERS Safety Report 5041413-7 (Version None)
Quarter: 2006Q2

REPORT INFORMATION
  Report Type: 
  Country: None (occurrence: None)
  Receive Date: 20060619
  Receipt Date: 20060601
  Transmission Date: 20061013
  Serious: Yes (Hospitalization)
  Sender: FDA-Public Use
  Company Number: WSDF_00554

PATIENT
  Age: 51 Year
  Sex: Male
  Weight: 98.4306 kg

DRUGS (14)
  1. WINRHO SDF [Suspect]
     Indication: THROMBOCYTOPENIA
     Dosage: 75 UG/KG ONCE IV
     Route: 042
     Dates: start: 20060516, end: 20060516
  2. WINRHO SDF [Suspect]
     Indication: THROMBOCYTOPENIA
     Dates: start: 20060516, end: 20060516
  3. WINRHO SDF [Suspect]
     Indication: THROMBOCYTOPENIA
     Dosage: 75 MCG/KG ONCE IV
     Route: 042
     Dates: start: 20060427, end: 20060427
  4. WINRHO SDF [Suspect]
     Indication: THROMBOCYTOPENIA
     Dates: start: 20060427, end: 20060427
  5. PEGASYS [Concomitant]
  6. RIBAVIRIN [Concomitant]
  7. NEUPOGEN [Concomitant]
  8. PROCRIT [Concomitant]
  9. METHADONE HCL [Concomitant]
  10. GLUCOTROL [Concomitant]
  11. FOLATE [Concomitant]
  12. IRON SULFATETHIAMIN COMPOUND TAB [Concomitant]
  13. VITAMIN K [Concomitant]
  14. VITAMIN B-12 [Concomitant]

REACTIONS (31)
  - ABDOMINAL DISTENSION [None]
  - ABDOMINAL PAIN [None]
  - ABDOMINAL PAIN UPPER [None]
  - ACTIVATED PARTIAL THROMBOPLASTIN TIME PROLONGED [None]
  - ASCITES [None]
  - BLOOD ALBUMIN DECREASED [None]
  - CHROMATURIA [None]
  - CLOSTRIDIUM DIFFICILE COLITIS [None]
  - COAGULOPATHY [None]
  - CONDITION AGGRAVATED [None]
  - COUGH [None]
  - DIARRHOEA [None]
  - DRY MOUTH [None]
  - FATIGUE [None]
  - GENERALISED OEDEMA [None]
  - HAEMOLYSIS [None]
  - HEADACHE [None]
  - HEPATIC FAILURE [None]
  - HYPERBILIRUBINAEMIA [None]
  - HYPERGLYCAEMIA [None]
  - HYPERHIDROSIS [None]
  - HYPOGLYCAEMIA [None]
  - JAUNDICE [None]
  - LUNG INFILTRATION [None]
  - NAUSEA [None]
  - PAIN IN JAW [None]
  - PROTHROMBIN TIME PROLONGED [None]
  - SYNCOPE [None]
  - TOOTHACHE [None]
  - VOMITING [None]
  - WEIGHT INCREASED [None]
